APPROVED DRUG PRODUCT: PROCAINAMIDE HYDROCHLORIDE
Active Ingredient: PROCAINAMIDE HYDROCHLORIDE
Strength: 750MG
Dosage Form/Route: TABLET, EXTENDED RELEASE;ORAL
Application: A088535 | Product #001
Applicant: WATSON LABORATORIES INC
Approved: Nov 3, 1984 | RLD: No | RS: No | Type: DISCN